FAERS Safety Report 7296143-8 (Version None)
Quarter: 2011Q1

REPORT INFORMATION
  Report Type: 
  Country: None (occurrence: None)
  Receive Date: 20110204
  Receipt Date: 20110119
  Transmission Date: 20110831
  Serious: Yes (Hospitalization, Other)
  Sender: FDA-Public Use
  Company Number: CTI_01223_2010

PATIENT
  Age: 24 Year
  Sex: Male

DRUGS (5)
  1. IBUPROFEN [Suspect]
     Indication: STREPTOCOCCAL INFECTION
     Dosage: 300 MG ORAL
     Route: 048
     Dates: start: 20100724, end: 20100727
  2. IBUPROFEN [Suspect]
     Indication: STREPTOCOCCAL INFECTION
     Dosage: 300 MG ORAL
     Route: 048
     Dates: start: 20100730, end: 20100804
  3. MEIACT (MEIACT MS (CEFDITOREN PIVOXIL) [Suspect]
     Indication: STREPTOCOCCAL INFECTION
     Dosage: 300 MG, ORAL
     Route: 048
     Dates: start: 20100730, end: 20100804
  4. MEIACT (MEIACT MS (CEFDITOREN PIVOXIL) [Suspect]
     Indication: STREPTOCOCCAL INFECTION
     Dosage: 300 MG, ORAL
     Route: 048
     Dates: start: 20100724, end: 20100727
  5. GLYCYRON (GLYCYRON MONOAMMONIUM GLYCYRRHIZINATE/GLYCINE, AMINOACETIC A [Suspect]
     Indication: STREPTOCOCCAL INFECTION
     Dosage: 600 MG ORAL
     Route: 048
     Dates: start: 20100730, end: 20100804

REACTIONS (4)
  - MALAISE [None]
  - TREATMENT NONCOMPLIANCE [None]
  - ERYTHEMA [None]
  - ANAPHYLACTIC SHOCK [None]
